FAERS Safety Report 21445488 (Version 1)
Quarter: 2022Q4

REPORT INFORMATION
  Report Type: Spontaneous
  Country: GB (occurrence: GB)
  Receive Date: 20221012
  Receipt Date: 20221012
  Transmission Date: 20230113
  Serious: Yes (Other)
  Sender: FDA-Public Use
  Company Number: GB-MHRA-MED-202209301309043730-VBRPH

PATIENT
  Age: 43 Year
  Sex: Female
  Weight: 115 kg

DRUGS (1)
  1. DOTAREM [Suspect]
     Active Substance: GADOTERATE MEGLUMINE
     Indication: Product used for unknown indication
     Dosage: 10 UNITS
     Route: 065

REACTIONS (3)
  - Erythema [Unknown]
  - Ocular hyperaemia [Unknown]
  - Nausea [Unknown]

NARRATIVE: CASE EVENT DATE: 20220929
